FAERS Safety Report 9300013 (Version 2)
Quarter: 2013Q4

REPORT INFORMATION
  Report Type: Report from Study
  Country: JP (occurrence: JP)
  Receive Date: 20130521
  Receipt Date: 20131210
  Transmission Date: 20140711
  Serious: Yes (Hospitalization)
  Sender: FDA-Public Use
  Company Number: JP-JNJFOC-20130201130

PATIENT
  Age: 87 Year
  Sex: Female
  Weight: 47 kg

DRUGS (10)
  1. RIVAROXABAN [Suspect]
     Indication: ATRIAL FIBRILLATION
     Route: 048
     Dates: start: 20120720, end: 20120803
  2. RIVAROXABAN [Suspect]
     Indication: THROMBOSIS PROPHYLAXIS
     Route: 048
     Dates: start: 20120720, end: 20120803
  3. RIVAROXABAN [Suspect]
     Indication: CEREBROVASCULAR ACCIDENT PROPHYLAXIS
     Route: 048
     Dates: start: 20120720, end: 20120803
  4. ALDACTONE A [Concomitant]
     Route: 048
  5. TAKEPRON [Concomitant]
     Route: 048
  6. VASOLAN [Concomitant]
     Route: 048
  7. GASLON N [Concomitant]
     Route: 048
  8. MYSLEE [Concomitant]
     Route: 048
  9. LASIX [Concomitant]
     Route: 048
  10. METHYCOBAL [Concomitant]
     Route: 048

REACTIONS (1)
  - Subdural haematoma [Unknown]
